FAERS Safety Report 6641509-X (Version None)
Quarter: 2010Q1

REPORT INFORMATION
  Report Type: 
  Country: None (occurrence: None)
  Receive Date: 20100318
  Receipt Date: 20100305
  Transmission Date: 20100710
  Serious: Yes (Death, Other)
  Sender: FDA-Public Use
  Company Number: AT-WATSON-2010-02663

PATIENT
  Age: 15 Year
  Sex: Male

DRUGS (4)
  1. DEXAMETHASONE TAB [Suspect]
     Indication: LEUKAEMIA
     Dosage: 10 MG/M2, DAYS 1-21
  2. VINCRISTINE [Suspect]
     Indication: LEUKAEMIA
     Dosage: 1.5 MG/M2, 1/WEEK, DAYS 8,15 + 22
  3. DOXORUBICIN [Suspect]
     Indication: LEUKAEMIA
     Dosage: 30 MG/M2, DAYS 8 + 15
  4. ASPARAGINASE [Suspect]
     Indication: LEUKAEMIA
     Dosage: 1000 U/M2 DAY 8

REACTIONS (2)
  - ACUTE RESPIRATORY DISTRESS SYNDROME [None]
  - PULMONARY HAEMORRHAGE [None]
